FAERS Safety Report 9856828 (Version 2)
Quarter: 2014Q1

REPORT INFORMATION
  Report Type: Spontaneous
  Country: US (occurrence: None)
  Receive Date: 20140128
  Receipt Date: 20140130
  Transmission Date: 20141002
  Serious: Yes (Disabling, Other)
  Sender: FDA-Public Use
  Company Number: 2014010049

PATIENT
  Age: 65 Year
  Sex: Female
  Weight: 64.86 kg

DRUGS (5)
  1. FELBATOL (FELBAMATE) [Suspect]
     Indication: PARTIAL SEIZURES
     Route: 048
     Dates: start: 1993, end: 1993
  2. AVASTIN (BEVACIZUMAB) [Suspect]
     Indication: CHEMOTHERAPY
     Dates: start: 2013
  3. BCNU [Suspect]
     Indication: CHEMOTHERAPY
     Dates: start: 2013
  4. ONFI (CLOBAZAM) [Concomitant]
  5. TEGRETOL (CARBAMAZEPINE) UNKNOWN [Concomitant]

REACTIONS (4)
  - Rash [None]
  - Platelet count decreased [None]
  - Brain neoplasm malignant [None]
  - Transfusion reaction [None]
